FAERS Safety Report 17401113 (Version 2)
Quarter: 2020Q1

REPORT INFORMATION
  Report Type: Report from Study
  Country: None (occurrence: GB)
  Receive Date: 20200211
  Receipt Date: 20200218
  Transmission Date: 20200409
  Serious: Yes (Life-Threatening, Hospitalization)
  Sender: FDA-Public Use
  Company Number: GB-ABBVIE-19P-167-3156552-00

PATIENT
  Age: 69 Year
  Sex: Male
  Weight: 86.3 kg

DRUGS (22)
  1. SENNOSIDE                          /00571902/ [Concomitant]
     Active Substance: SENNOSIDES A AND B
     Dosage: MINIMUM DOSAGE INTERVAL 20 HOURS
     Route: 048
  2. IBRUTINIB [Suspect]
     Active Substance: IBRUTINIB
     Route: 048
     Dates: end: 20190812
  3. PARACETAMOL [Concomitant]
     Active Substance: ACETAMINOPHEN
     Indication: PRODUCT USED FOR UNKNOWN INDICATION
     Dosage: (9:00, 13:00, 18:00, 22: 30)
     Route: 048
  4. POSACONAZOLE [Concomitant]
     Active Substance: POSACONAZOLE
     Indication: ANTIFUNGAL PROPHYLAXIS
     Dosage: (9:00)
  5. PREDNISOLONE. [Concomitant]
     Active Substance: PREDNISOLONE
     Indication: PRODUCT USED FOR UNKNOWN INDICATION
     Dosage: (9:00)
     Route: 048
  6. GENTAMICIN. [Concomitant]
     Active Substance: GENTAMICIN
     Indication: ANTIBIOTIC THERAPY
     Route: 030
  7. IBRUTINIB [Suspect]
     Active Substance: IBRUTINIB
     Indication: CHRONIC LYMPHOCYTIC LEUKAEMIA
     Route: 048
     Dates: start: 20150516, end: 20190630
  8. ALLOPURINOL. [Concomitant]
     Active Substance: ALLOPURINOL
     Indication: PRODUCT USED FOR UNKNOWN INDICATION
     Dosage: IN THE MORNING 9 AM
  9. CODEINE PHOSPHATE [Concomitant]
     Active Substance: CODEINE PHOSPHATE
     Indication: PRODUCT USED FOR UNKNOWN INDICATION
     Dosage: 30 TO 60 MG MIN DOSAGE INTERVAL 4 HRS UP TO 240 MG Q 24 HRS
     Route: 048
  10. MACROGOL [Concomitant]
     Active Substance: POLYETHYLENE GLYCOLS
     Indication: CONSTIPATION
     Dosage: 2 -8 SACHETS MIN DOSAGE INTERVAL 2 HOURS
     Route: 048
  11. ZEROBASE                           /00103901/ [Concomitant]
     Indication: RASH PRURITIC
     Dosage: (9:00, 18:00)
     Route: 061
  12. CETIRIZINE HYDROCHLORIDE. [Concomitant]
     Active Substance: CETIRIZINE HYDROCHLORIDE
     Indication: PRODUCT USED FOR UNKNOWN INDICATION
     Dosage: AT NIGHT (22:30)
     Route: 048
  13. SENNOSIDE                          /00571902/ [Concomitant]
     Active Substance: SENNOSIDES A AND B
     Indication: PRODUCT USED FOR UNKNOWN INDICATION
     Dosage: (22:30)
     Route: 048
  14. TAMSULOSIN [Concomitant]
     Active Substance: TAMSULOSIN
     Indication: PRODUCT USED FOR UNKNOWN INDICATION
     Dosage: (9:00)
     Route: 048
  15. CHLORHEXIDINE GLUCONATE. [Concomitant]
     Active Substance: CHLORHEXIDINE GLUCONATE
     Indication: PRODUCT USED FOR UNKNOWN INDICATION
     Dosage: 0.2 % MOUTH WASH 4 X A DAY
  16. PARACETAMOL [Concomitant]
     Active Substance: ACETAMINOPHEN
     Dosage: MINIMUM DOSAGE INTERVAL 6 HOURS UP TO 4 G PER DAY.
     Route: 048
  17. ZOPICLONE [Concomitant]
     Active Substance: ZOPICLONE
     Dosage: 3.75 MG ORAL STAT (22:49)
     Route: 048
  18. LACTULOSE. [Concomitant]
     Active Substance: LACTULOSE
     Indication: PRODUCT USED FOR UNKNOWN INDICATION
     Dosage: (9:00, 18:00)
     Route: 048
  19. LACTULOSE. [Concomitant]
     Active Substance: LACTULOSE
     Dosage: MINIMUM DOSAGE INTERVAL 12 HOURS UP TO 20 ML PER DAY
     Route: 048
  20. LANSOPRAZOLE. [Concomitant]
     Active Substance: LANSOPRAZOLE
     Indication: PRODUCT USED FOR UNKNOWN INDICATION
     Dosage: IN THE MORNING (9:00)
     Route: 048
  21. LIDOCAINE W/ZINC OXIDE [Concomitant]
     Indication: PRODUCT USED FOR UNKNOWN INDICATION
     Dosage: LIDOCAINE 0.7%+ ZINC OXIDE 6.6% CREAM ; DOSAGE INTERVAL 4 HRS
     Route: 061
  22. ZOPICLONE [Concomitant]
     Active Substance: ZOPICLONE
     Indication: INSOMNIA
     Dosage: MINIMUM DOSAGE INTERVAL 24 HRS
     Route: 048

REACTIONS (2)
  - Urinary retention [Recovered/Resolved]
  - Autoimmune neutropenia [Recovered/Resolved with Sequelae]

NARRATIVE: CASE EVENT DATE: 20190713
